FAERS Safety Report 4571547-2 (Version None)
Quarter: 2005Q1

REPORT INFORMATION
  Report Type: 
  Country: None (occurrence: None)
  Receive Date: 20050207
  Receipt Date: 20050111
  Transmission Date: 20050727
  Serious: Yes (Other)
  Sender: FDA-Public Use
  Company Number: 200510068DE

PATIENT
  Age: 32 Year
  Sex: Female
  Weight: 87 kg

DRUGS (3)
  1. TELFAST [Suspect]
     Indication: CONJUNCTIVITIS ALLERGIC
     Route: 048
  2. OPIPRAMOL [Suspect]
     Indication: SLEEP DISORDER
     Route: 048
     Dates: start: 20041201
  3. OPIPRAMOL [Suspect]
     Indication: TENSION
     Route: 048
     Dates: start: 20041201

REACTIONS (7)
  - BLOOD PRESSURE DECREASED [None]
  - DIZZINESS [None]
  - HYPERHIDROSIS [None]
  - HYPERSENSITIVITY [None]
  - NAUSEA [None]
  - TACHYCARDIA [None]
  - TREMOR [None]
